FAERS Safety Report 16286259 (Version 2)
Quarter: 2019Q2

REPORT INFORMATION
  Report Type: Spontaneous
  Country: US (occurrence: US)
  Receive Date: 20190508
  Receipt Date: 20190620
  Transmission Date: 20190711
  Serious: Yes (Hospitalization)
  Sender: FDA-Public Use
  Company Number: US-PFIZER INC-2019189021

PATIENT
  Age: 72 Year
  Sex: Female
  Weight: 79.37 kg

DRUGS (2)
  1. NICOTROL [Suspect]
     Active Substance: NICOTINE
     Indication: CHRONIC OBSTRUCTIVE PULMONARY DISEASE
     Dosage: 4 MG, AS NEEDED
     Dates: start: 2019
  2. NICOTROL [Suspect]
     Active Substance: NICOTINE
     Indication: EMPHYSEMA
     Dosage: 10 MG, 3X/DAY
     Dates: start: 20190412

REACTIONS (3)
  - Product use in unapproved indication [Unknown]
  - Oral candidiasis [Recovered/Resolved]
  - Off label use [Unknown]

NARRATIVE: CASE EVENT DATE: 2019
